FAERS Safety Report 7941768-7 (Version None)
Quarter: 2011Q4

REPORT INFORMATION
  Report Type: 
  Country: None (occurrence: None)
  Receive Date: 20111128
  Receipt Date: 20111002
  Transmission Date: 20120403
  Serious: No
  Sender: FDA-Public Use
  Company Number: US-BAYER-2011-095148

PATIENT

DRUGS (1)
  1. ALEVE (CAPLET) [Suspect]
     Indication: NECK PAIN

REACTIONS (4)
  - RASH MACULAR [None]
  - PRURITUS [None]
  - ECZEMA [None]
  - PAIN OF SKIN [None]
